FAERS Safety Report 4540912-1 (Version None)
Quarter: 2004Q4

REPORT INFORMATION
  Report Type: 
  Country: None (occurrence: None)
  Receive Date: 20041229
  Receipt Date: 20040812
  Transmission Date: 20050328
  Serious: Yes (Hospitalization)
  Sender: FDA-Public Use
  Company Number: NZ-GLAXOSMITHKLINE-B0342490A

PATIENT
  Age: 47 Year
  Sex: Female

DRUGS (8)
  1. FLIXOTIDE [Suspect]
     Indication: DRUG USE FOR UNKNOWN INDICATION
     Dosage: 125MCG SEE DOSAGE TEXT
     Route: 055
     Dates: end: 20040811
  2. SEREVENT [Suspect]
     Route: 065
  3. COMBIVENT [Suspect]
     Route: 065
  4. OXIS [Suspect]
     Route: 065
  5. SYMBICORT [Suspect]
     Route: 065
  6. PULMICORT [Suspect]
     Route: 065
  7. VENTOLIN [Concomitant]
     Route: 065
  8. BECLAZONE [Concomitant]
     Route: 065

REACTIONS (6)
  - BRONCHOSPASM [None]
  - CHEST PAIN [None]
  - COUGH [None]
  - DYSPNOEA [None]
  - THROAT IRRITATION [None]
  - TREMOR [None]
